FAERS Safety Report 8652983 (Version 7)
Quarter: 2020Q3

REPORT INFORMATION
  Report Type: Report from Study
  Country: US (occurrence: US)
  Receive Date: 20120706
  Receipt Date: 20130722
  Transmission Date: 20201104
  Serious: Yes (Life-Threatening, Hospitalization)
  Sender: FDA-Public Use
  Company Number: US-JNJFOC-20120702196

PATIENT
  Age: 82 Year
  Sex: Female
  Weight: 74.2 kg

DRUGS (16)
  1. ASPIRIN (ENTERIC COATED) [Concomitant]
     Route: 048
     Dates: start: 20120524
  2. USTEKINUMAB [Suspect]
     Active Substance: USTEKINUMAB
     Indication: PSORIATIC ARTHROPATHY
     Route: 058
     Dates: start: 20110406
  3. COREG [Concomitant]
     Active Substance: CARVEDILOL
     Dates: start: 20120510
  4. MULTIVITAMINS [Concomitant]
     Active Substance: VITAMINS
     Route: 048
     Dates: start: 2004
  5. MELOXICAM. [Concomitant]
     Active Substance: MELOXICAM
     Indication: PSORIATIC ARTHROPATHY
     Route: 048
     Dates: start: 20101115, end: 20120520
  6. CHONDROITIN SULFATE (BOVINE)\GLUCOSAMINE SULFATE [Concomitant]
     Active Substance: CHONDROITIN SULFATE (BOVINE)\GLUCOSAMINE SULFATE
     Route: 048
     Dates: start: 20120512, end: 20120520
  7. MELOXICAM. [Concomitant]
     Active Substance: MELOXICAM
     Indication: PSORIATIC ARTHROPATHY
     Route: 048
     Dates: start: 20120524
  8. SIMVASTATIN. [Concomitant]
     Active Substance: SIMVASTATIN
     Route: 048
     Dates: start: 2007, end: 20120512
  9. COREG [Concomitant]
     Active Substance: CARVEDILOL
  10. LISINOPRIL. [Concomitant]
     Active Substance: LISINOPRIL
     Route: 048
     Dates: start: 20120510
  11. AMLODIPINE BESYLATE. [Concomitant]
     Active Substance: AMLODIPINE BESYLATE
     Route: 048
     Dates: start: 2007, end: 20120508
  12. INVANZ [Concomitant]
     Active Substance: ERTAPENEM SODIUM
     Route: 042
     Dates: start: 201205, end: 20120526
  13. CHONDROITIN SULFATE (BOVINE)\GLUCOSAMINE SULFATE [Concomitant]
     Active Substance: CHONDROITIN SULFATE (BOVINE)\GLUCOSAMINE SULFATE
     Route: 048
     Dates: start: 20120524
  14. POTASSIUM [Concomitant]
     Active Substance: POTASSIUM
     Route: 048
     Dates: start: 20110312
  15. USTEKINUMAB [Suspect]
     Active Substance: USTEKINUMAB
     Indication: PSORIATIC ARTHROPATHY
     Route: 058
     Dates: start: 20120404
  16. GLUCOSAMINE [Concomitant]
     Active Substance: GLUCOSAMINE
     Route: 048
     Dates: start: 2000, end: 20120508

REACTIONS (1)
  - Proteus infection [Recovered/Resolved]

NARRATIVE: CASE EVENT DATE: 20120620
